FAERS Safety Report 12821149 (Version 1)
Quarter: 2016Q4

REPORT INFORMATION
  Report Type: Spontaneous
  Country: GR (occurrence: GR)
  Receive Date: 20161007
  Receipt Date: 20161007
  Transmission Date: 20170207
  Serious: Yes (Other)
  Sender: FDA-Public Use
  Company Number: GR-SUN PHARMACEUTICAL INDUSTRIES LTD-2015R1-95644

PATIENT
  Age: 36 Year
  Sex: Female

DRUGS (1)
  1. ZOLEDRONIC ACID [Suspect]
     Active Substance: ZOLEDRONIC ACID
     Indication: BONE DISORDER
     Dosage: 3.5 MG, SINGLE
     Route: 042

REACTIONS (2)
  - Hypocalcaemia [Recovering/Resolving]
  - Hyperparathyroidism secondary [Unknown]
